FAERS Safety Report 11321329 (Version 2)
Quarter: 2015Q3

REPORT INFORMATION
  Report Type: Spontaneous
  Country: DE (occurrence: DE)
  Receive Date: 20150729
  Receipt Date: 20150810
  Transmission Date: 20151125
  Serious: Yes (Other)
  Sender: FDA-Public Use
  Company Number: DE-GLAXOSMITHKLINE-DE2015GSK105803

PATIENT
  Sex: Female
  Weight: 82 kg

DRUGS (4)
  1. CALCICARE [Concomitant]
     Indication: OSTEOPOROSIS PROPHYLAXIS
     Dosage: 1 UNK, QD
     Route: 048
     Dates: start: 20150703
  2. PREDNISOLON [Concomitant]
     Active Substance: PREDNISOLONE
     Indication: SYSTEMIC LUPUS ERYTHEMATOSUS
     Dosage: UNK
     Route: 065
     Dates: start: 2003
  3. ASPIRIN. [Concomitant]
     Active Substance: ASPIRIN
     Indication: ANTIPHOSPHOLIPID SYNDROME
     Dosage: 100 MG, QD
     Route: 048
     Dates: start: 2003
  4. BELIMUMAB [Suspect]
     Active Substance: BELIMUMAB
     Indication: SYSTEMIC LUPUS ERYTHEMATOSUS
     Dosage: 820 MG, Z
     Route: 042
     Dates: start: 20141013

REACTIONS (1)
  - Cystoid macular oedema [Recovering/Resolving]
